FAERS Safety Report 16757485 (Version 6)
Quarter: 2019Q4

REPORT INFORMATION
  Report Type: Spontaneous
  Country: US (occurrence: US)
  Receive Date: 20190830
  Receipt Date: 20191018
  Transmission Date: 20200122
  Serious: Yes (Hospitalization, Other)
  Sender: FDA-Public Use
  Company Number: US-AMGEN-USASP2019135934

PATIENT
  Age: 71 Year
  Sex: Female
  Weight: 73.92 kg

DRUGS (2)
  1. DEXAMETHASONE. [Concomitant]
     Active Substance: DEXAMETHASONE
     Dosage: 10 MILLIGRAM, BID
     Route: 042
  2. BLINCYTO [Suspect]
     Active Substance: BLINATUMOMAB
     Indication: MARGINAL ZONE LYMPHOMA
     Dosage: 112 MICROGRAM, CONTINUING
     Route: 042
     Dates: start: 20190806

REACTIONS (7)
  - Fall [Unknown]
  - Encephalopathy [Unknown]
  - Pyrexia [Unknown]
  - Muscular weakness [Unknown]
  - Fatigue [Unknown]
  - Transient ischaemic attack [Unknown]
  - Cough [Not Recovered/Not Resolved]

NARRATIVE: CASE EVENT DATE: 201908
